FAERS Safety Report 7171471-5 (Version None)
Quarter: 2010Q4

REPORT INFORMATION
  Report Type: 
  Country: None (occurrence: None)
  Receive Date: 20101217
  Receipt Date: 20101206
  Transmission Date: 20110411
  Serious: Yes (Hospitalization, Other)
  Sender: FDA-Public Use
  Company Number: FR-ELI_LILLY_AND_COMPANY-FR201012001279

PATIENT
  Sex: Female

DRUGS (1)
  1. PROZAC [Suspect]
     Indication: DEPRESSION
     Dosage: 20 MG, DAILY (1/D)
     Dates: start: 20100807, end: 20100817

REACTIONS (9)
  - ADRENAL MASS [None]
  - ALCOHOLISM [None]
  - FALL [None]
  - HYPONATRAEMIA [None]
  - INAPPROPRIATE ANTIDIURETIC HORMONE SECRETION [None]
  - MAJOR DEPRESSION [None]
  - METABOLIC ACIDOSIS [None]
  - POLYDIPSIA PSYCHOGENIC [None]
  - RESPIRATORY ALKALOSIS [None]
